FAERS Safety Report 19555504 (Version 1)
Quarter: 2021Q3

REPORT INFORMATION
  Report Type: Spontaneous
  Country: IL (occurrence: IL)
  Receive Date: 20210715
  Receipt Date: 20210715
  Transmission Date: 20211014
  Serious: Yes (Life-Threatening, Hospitalization, Disabling)
  Sender: FDA-Public Use
  Company Number: IL-FRESENIUS KABI-FK202107159

PATIENT
  Age: 0 Day
  Sex: Male
  Weight: 1.24 kg

DRUGS (2)
  1. SMOFLIPID [Suspect]
     Active Substance: FISH OIL\MEDIUM-CHAIN TRIGLYCERIDES\OLIVE OIL\SOYBEAN OIL
     Indication: PARENTERAL NUTRITION
     Dosage: 6ML/KG/DAY; ADMINISTERED OVER 24 HOURS. INSTEAD OF RECEIVING 6ML/KG/DAY LIPID, THE INFANT RECEIVED 6
     Route: 042
     Dates: start: 20210702, end: 20210703
  2. VITAMINS NOS [Suspect]
     Active Substance: VITAMINS
     Indication: PARENTERAL NUTRITION
     Dosage: UNKNOWN
     Route: 042

REACTIONS (6)
  - Liver injury [Unknown]
  - Toxicity to various agents [Unknown]
  - Incorrect drug administration rate [Unknown]
  - Accidental overdose [Unknown]
  - Acute kidney injury [Unknown]
  - Product packaging confusion [Unknown]

NARRATIVE: CASE EVENT DATE: 20210702
